FAERS Safety Report 24630908 (Version 2)
Quarter: 2025Q3

REPORT INFORMATION
  Report Type: Spontaneous
  Country: GB (occurrence: GB)
  Receive Date: 20241118
  Receipt Date: 20250809
  Transmission Date: 20251021
  Serious: Yes (Death, Other)
  Sender: ALEXION PHARMACEUTICALS
  Company Number: None

PATIENT
  Age: 78 Year
  Sex: Female
  Weight: 89 kg

DRUGS (17)
  1. DAPAGLIFLOZIN [Suspect]
     Active Substance: DAPAGLIFLOZIN
     Dates: start: 20240930, end: 20241009
  2. CLOTRIMAZOLE [Concomitant]
     Active Substance: CLOTRIMAZOLE
     Indication: Type 2 diabetes mellitus
     Route: 065
     Dates: start: 20240730, end: 20240911
  3. HYDROCORTISONE [Concomitant]
     Active Substance: HYDROCORTISONE
     Route: 065
     Dates: start: 20240830, end: 20241012
  4. NYSTATIN [Concomitant]
     Active Substance: NYSTATIN
     Route: 065
     Dates: start: 20240830, end: 20240928
  5. NYSTATIN [Concomitant]
     Active Substance: NYSTATIN
     Dates: start: 20241016, end: 20241016
  6. DIAZEPAM [Concomitant]
     Active Substance: DIAZEPAM
     Indication: Back pain
  7. POLYETHYLENE GLYCOLS [Concomitant]
     Active Substance: POLYETHYLENE GLYCOLS
     Indication: Back pain
  8. ACETAMINOPHEN [Concomitant]
     Active Substance: ACETAMINOPHEN
  9. CODEINE [Concomitant]
     Active Substance: CODEINE
     Route: 065
     Dates: start: 20241014, end: 20241016
  10. ACETAMINOPHEN\CODEINE PHOSPHATE [Concomitant]
     Active Substance: ACETAMINOPHEN\CODEINE PHOSPHATE
     Indication: Myelodysplastic syndrome
     Route: 065
  11. COCODAMOL [Concomitant]
     Active Substance: ACETAMINOPHEN\CODEINE PHOSPHATE
     Indication: Myelodysplastic syndrome
     Route: 065
  12. OXYCODONE HYDROCHLORIDE [Concomitant]
     Active Substance: OXYCODONE HYDROCHLORIDE
     Indication: Myelodysplastic syndrome
     Route: 065
  13. METOCLOPRAMIDE [Concomitant]
     Active Substance: METOCLOPRAMIDE
     Indication: Myelodysplastic syndrome
     Route: 065
  14. OXYCODONE [Concomitant]
     Active Substance: OXYCODONE
     Route: 065
  15. LEVOMEPROMAZINE [Concomitant]
     Active Substance: LEVOMEPROMAZINE
     Indication: Myelodysplastic syndrome
  16. MIDAZOLAM [Concomitant]
     Active Substance: MIDAZOLAM
     Indication: Myelodysplastic syndrome
     Route: 065
  17. GLYCOPYRRONIUM [Concomitant]
     Active Substance: GLYCOPYRRONIUM
     Indication: Myelodysplastic syndrome
     Route: 065

REACTIONS (2)
  - Acute myeloid leukaemia [Fatal]
  - Back pain [Fatal]

NARRATIVE: CASE EVENT DATE: 20241002
